FAERS Safety Report 20750749 (Version 4)
Quarter: 2024Q1

REPORT INFORMATION
  Report Type: Spontaneous
  Country: US (occurrence: US)
  Receive Date: 20220426
  Receipt Date: 20240108
  Transmission Date: 20240409
  Serious: No
  Sender: FDA-Public Use
  Company Number: US-PFIZER INC-202200342383

PATIENT
  Age: 81 Year
  Sex: Male

DRUGS (1)
  1. BENEFIX [Suspect]
     Active Substance: COAGULATION FACTOR IX RECOMBINANT HUMAN\ISOPROPYL ALCOHOL
     Indication: Haemorrhage prophylaxis
     Dosage: 8000 IU, AS NEEDED (EVERY 24 HOURS +/-10% SLOW I.V. PUSH)
     Route: 042

REACTIONS (3)
  - Off label use [Unknown]
  - Hypoacusis [Unknown]
  - Fall [Unknown]

NARRATIVE: CASE EVENT DATE: 20231001
